FAERS Safety Report 9854206 (Version 3)
Quarter: 2015Q2

REPORT INFORMATION
  Report Type: Report from Study
  Country: FR (occurrence: FR)
  Receive Date: 20140130
  Receipt Date: 20150403
  Transmission Date: 20150821
  Serious: Yes (Hospitalization, Disabling)
  Sender: FDA-Public Use
  Company Number: FR-ROCHE-1336771

PATIENT
  Sex: Female

DRUGS (6)
  1. METHOTREXATE [Concomitant]
     Active Substance: METHOTREXATE
  2. LEFLUNOMIDE. [Concomitant]
     Active Substance: LEFLUNOMIDE
  3. ARAVA [Suspect]
     Active Substance: LEFLUNOMIDE
     Indication: PRODUCT USED FOR UNKNOWN INDICATION
     Route: 065
  4. ATORVASTATINE [Concomitant]
     Active Substance: ATORVASTATIN
     Route: 065
  5. CORTANCYL [Concomitant]
     Active Substance: PREDNISONE
  6. RITUXIMAB [Suspect]
     Active Substance: RITUXIMAB
     Indication: RHEUMATOID ARTHRITIS
     Dosage: ON 26/DEC/2006, 18/DEC/2007, 15/APR/2009, 02/OCT/2013 AND 16/APR/2014 THE PATIENT RECEIVED RITUXIMAB
     Route: 041
     Dates: start: 20051012

REACTIONS (7)
  - Ischaemic stroke [Recovered/Resolved with Sequelae]
  - Disseminated intravascular coagulation [Recovered/Resolved with Sequelae]
  - Infusion related reaction [Recovered/Resolved]
  - Hypertension [Recovered/Resolved]
  - Cerebrovascular accident [Recovered/Resolved]
  - Hypersensitivity [Recovered/Resolved]
  - Diabetes mellitus [Recovered/Resolved]

NARRATIVE: CASE EVENT DATE: 20071225
